FAERS Safety Report 18200454 (Version 1)
Quarter: 2020Q3

REPORT INFORMATION
  Report Type: Spontaneous
  Country: CA (occurrence: CA)
  Receive Date: 20200826
  Receipt Date: 20200826
  Transmission Date: 20201103
  Serious: Yes (Other)
  Sender: FDA-Public Use
  Company Number: CA-TEVA-2020-CA-1817631

PATIENT
  Age: 80 Year

DRUGS (1)
  1. DILTIAZEM CD 120 MG/24 HRS, 120MG PAR [Suspect]
     Active Substance: DILTIAZEM

REACTIONS (7)
  - Heart rate decreased [Not Recovered/Not Resolved]
  - Oropharyngeal discomfort [Unknown]
  - Bundle branch block [Unknown]
  - Heart rate increased [Not Recovered/Not Resolved]
  - Extrasystoles [Unknown]
  - Ventricular extrasystoles [Unknown]
  - Dizziness [Unknown]
